FAERS Safety Report 12139320 (Version 1)
Quarter: 2016Q1

REPORT INFORMATION
  Report Type: Spontaneous
  Country: US (occurrence: US)
  Receive Date: 20160303
  Receipt Date: 20160303
  Transmission Date: 20160526
  Serious: No
  Sender: FDA-Public Use
  Company Number: US-AMGEN-USASP2016024281

PATIENT
  Age: 57 Year
  Sex: Female
  Weight: 98.87 kg

DRUGS (12)
  1. PROGESTERONE. [Concomitant]
     Active Substance: PROGESTERONE
     Dosage: 100 MG, UNK
  2. ENBREL [Suspect]
     Active Substance: ETANERCEPT
     Indication: RHEUMATOID ARTHRITIS
     Dosage: 50 MG/ML, QWK
     Route: 058
  3. LYRICA [Concomitant]
     Active Substance: PREGABALIN
  4. PREDNISONE. [Concomitant]
     Active Substance: PREDNISONE
     Dosage: 5 MG, QD
     Route: 048
  5. HYDROCODONE BITARTRATE AND ACETAMINOPHEN [Concomitant]
     Active Substance: ACETAMINOPHEN\HYDROCODONE BITARTRATE
     Dosage: 10MG AND 325MG, THREE TIME A DAY
     Route: 048
  6. METHOTREXATE [Concomitant]
     Active Substance: METHOTREXATE
     Dosage: 25 MG, QWK
     Route: 058
  7. PREDNISONE. [Concomitant]
     Active Substance: PREDNISONE
     Dosage: 10 MG, UNK
  8. DULOXETINE. [Concomitant]
     Active Substance: DULOXETINE
     Dosage: 60 MG, QD
     Route: 048
     Dates: start: 20160111
  9. HYDROXYCHLOROQUINE [Concomitant]
     Active Substance: HYDROXYCHLOROQUINE
     Dosage: 200 MG, BID
     Route: 048
  10. HYDROXYZINE HCL [Concomitant]
     Active Substance: HYDROXYZINE HYDROCHLORIDE
     Dosage: 25 MG, UNK
  11. DICLOFENAC                         /00372304/ [Concomitant]
     Dosage: 50 MG, UNK
  12. FOLIC ACID. [Concomitant]
     Active Substance: FOLIC ACID
     Dosage: 1 MG, QD
     Route: 048

REACTIONS (13)
  - Muscle injury [Unknown]
  - Muscle spasms [Unknown]
  - Nodal osteoarthritis [Unknown]
  - Myalgia [Unknown]
  - Muscular weakness [Unknown]
  - Drug ineffective [Unknown]
  - Skin injury [Unknown]
  - Swelling [Unknown]
  - Musculoskeletal stiffness [Unknown]
  - Tenderness [Unknown]
  - Arthralgia [Unknown]
  - Synovitis [Unknown]
  - Pain [Not Recovered/Not Resolved]
